FAERS Safety Report 12426891 (Version 1)
Quarter: 2016Q2

REPORT INFORMATION
  Report Type: Spontaneous
  Country: US (occurrence: US)
  Receive Date: 20160601
  Receipt Date: 20160601
  Transmission Date: 20160815
  Serious: No
  Sender: FDA-Public Use
  Company Number: US-SEPTODONT-201503194

PATIENT

DRUGS (5)
  1. SEPTOCAINE AND EPINEPHRINE [Suspect]
     Active Substance: ARTICAINE HYDROCHLORIDE\EPINEPHRINE BITARTRATE
     Indication: LOCAL ANAESTHESIA
     Dosage: FILLINGS, ROOT CANALS AND CROWN PREPARATIONS. NEEDED TO USE UP TO FIVE CARPULES IN SOME INSTANCES
     Route: 004
  2. SEPTOCAINE AND EPINEPHRINE [Suspect]
     Active Substance: ARTICAINE HYDROCHLORIDE\EPINEPHRINE BITARTRATE
     Indication: LOCAL ANAESTHESIA
     Dosage: FILLINGS, ROOT CANALS AND CROWN PREPARATIONS. NEEDED TO USE UP TO FIVE CARPULES IN SOME INSTANCES
     Route: 004
  3. SEPTOCAINE AND EPINEPHRINE [Suspect]
     Active Substance: ARTICAINE HYDROCHLORIDE\EPINEPHRINE BITARTRATE
     Indication: LOCAL ANAESTHESIA
     Dosage: FILLINGS, ROOT CANALS AND CROWN PREPARATIONS. NEEDED TO USE UP TO FIVE CARPULES IN SOME INSTANCES
     Route: 004
  4. SEPTOCAINE AND EPINEPHRINE [Suspect]
     Active Substance: ARTICAINE HYDROCHLORIDE\EPINEPHRINE BITARTRATE
     Indication: LOCAL ANAESTHESIA
     Dosage: FILLINGS, ROOT CANALS AND CROWN PREPARATIONS. NEEDED TO USE UP TO FIVE CARPULES IN SOME INSTANCES
     Route: 004
  5. SEPTOCAINE AND EPINEPHRINE [Suspect]
     Active Substance: ARTICAINE HYDROCHLORIDE\EPINEPHRINE BITARTRATE
     Indication: LOCAL ANAESTHESIA
     Dosage: FILLINGS, ROOT CANALS AND CROWN PREPARATIONS. NEEDED TO USE UP TO FIVE CARPULES IN SOME INSTANCES
     Route: 004

REACTIONS (1)
  - Drug ineffective [Unknown]

NARRATIVE: CASE EVENT DATE: 20151110
